FAERS Safety Report 5933649-5 (Version None)
Quarter: 2008Q4

REPORT INFORMATION
  Report Type: 
  Country: None (occurrence: None)
  Receive Date: 20081024
  Receipt Date: 20080926
  Transmission Date: 20090506
  Serious: Yes (Hospitalization)
  Sender: FDA-Public Use
  Company Number: 2008BM000192

PATIENT
  Age: 11 Year
  Sex: Male

DRUGS (2)
  1. NAGLAZYME [Suspect]
     Indication: MUCOPOLYSACCHARIDOSIS VI
     Dosage: 20 MG;QW;IV_DRP IV_DRP
     Route: 041
  2. BECLOMETHASONE DIPROPIONATE [Concomitant]

REACTIONS (3)
  - BACTERIAL INFECTION [None]
  - BRONCHIOLITIS [None]
  - BRONCHITIS CHRONIC [None]
